FAERS Safety Report 6303883-3 (Version None)
Quarter: 2009Q3

REPORT INFORMATION
  Report Type: 
  Country: None (occurrence: None)
  Receive Date: 20090805
  Receipt Date: 20090720
  Transmission Date: 20100115
  Serious: Yes (Other)
  Sender: FDA-Public Use
  Company Number: DSA_30783_2007

PATIENT
  Sex: Female
  Weight: 58.9676 kg

DRUGS (4)
  1. ISOSORBIDE DINITRATE [Suspect]
     Indication: CHEST PAIN
     Dosage: DF
     Dates: start: 19920101
  2. LISINOPRIL [Suspect]
     Indication: HYPERTENSION
     Dosage: DF
     Dates: start: 19840101
  3. ATENOLOL [Suspect]
     Indication: HEART RATE IRREGULAR
     Dosage: DF
  4. POTASSIUM CHLORIDE [Concomitant]

REACTIONS (3)
  - BLOOD POTASSIUM DECREASED [None]
  - BLOOD PRESSURE FLUCTUATION [None]
  - CHEST PAIN [None]
